FAERS Safety Report 24149598 (Version 1)
Quarter: 2024Q3

REPORT INFORMATION
  Report Type: Spontaneous
  Country: JP (occurrence: JP)
  Receive Date: 20240730
  Receipt Date: 20240730
  Transmission Date: 20241017
  Serious: Yes (Death)
  Sender: BOEHRINGER INGELHEIM
  Company Number: JP-NBI-2024-BI-040474

PATIENT
  Age: 88 Year
  Sex: Female
  Weight: 49.7 kg

DRUGS (1)
  1. JARDIANCE [Suspect]
     Active Substance: EMPAGLIFLOZIN
     Indication: Cardiac failure
     Route: 048

REACTIONS (2)
  - Pneumonia aspiration [Fatal]
  - Nothing by mouth order [Unknown]

NARRATIVE: CASE EVENT DATE: 20240707
